FAERS Safety Report 17817171 (Version 4)
Quarter: 2020Q3

REPORT INFORMATION
  Report Type: Report from Study
  Country: US (occurrence: US)
  Receive Date: 20200522
  Receipt Date: 20200715
  Transmission Date: 20201102
  Serious: Yes (Other)
  Sender: FDA-Public Use
  Company Number: US-ROCHE-2602968

PATIENT
  Age: 56 Year
  Sex: Female
  Weight: 95.1 kg

DRUGS (39)
  1. CHOLECALCIFEROL [Concomitant]
     Active Substance: CHOLECALCIFEROL
     Indication: VITAMIN D DEFICIENCY
     Dosage: 1000 U (UNIT)
     Dates: start: 20200511, end: 20200527
  2. LOVENOX [Concomitant]
     Active Substance: ENOXAPARIN SODIUM
     Indication: THROMBOSIS PROPHYLAXIS
     Dates: start: 20200511, end: 20200519
  3. DITROPAN [Concomitant]
     Active Substance: OXYBUTYNIN CHLORIDE
     Indication: HYPERTONIC BLADDER
     Dates: start: 20200511, end: 20200527
  4. SUBLIMAZE [Concomitant]
     Active Substance: FENTANYL CITRATE
     Indication: PAIN PROPHYLAXIS
     Dosage: 25 (OTHER)
     Dates: start: 20200510
  5. LASIX [Concomitant]
     Active Substance: FUROSEMIDE
     Dates: start: 20200520, end: 20200524
  6. NIMBEX [Concomitant]
     Active Substance: CISATRACURIUM BESYLATE
     Dates: start: 20200513, end: 20200516
  7. DOCUSATE [Concomitant]
     Active Substance: DOCUSATE
     Indication: CONSTIPATION
     Dates: start: 20200512, end: 20200525
  8. VERSED [Concomitant]
     Active Substance: MIDAZOLAM HYDROCHLORIDE
     Dates: start: 20200512, end: 20200521
  9. VERSED [Concomitant]
     Active Substance: MIDAZOLAM HYDROCHLORIDE
     Dates: start: 20200511, end: 20200524
  10. ANCEF (UNITED STATES) [Concomitant]
     Indication: PNEUMONIA
     Dates: start: 20200514, end: 20200515
  11. PHENOBARBITAL. [Concomitant]
     Active Substance: PHENOBARBITAL
     Dates: start: 20200519, end: 20200521
  12. PHENOBARBITAL. [Concomitant]
     Active Substance: PHENOBARBITAL
     Dates: start: 20200522, end: 20200523
  13. LASIX [Concomitant]
     Active Substance: FUROSEMIDE
     Indication: FLUID RETENTION
     Dates: start: 20200517, end: 20200520
  14. DIAMOX SEQUELS [Concomitant]
     Active Substance: ACETAZOLAMIDE
     Indication: PROPHYLAXIS
     Dates: start: 20200524, end: 20200524
  15. PROPOFOL. [Concomitant]
     Active Substance: PROPOFOL
     Dates: start: 20200511, end: 20200519
  16. PRECEDEX [Concomitant]
     Active Substance: DEXMEDETOMIDINE HYDROCHLORIDE
     Dates: start: 20200522, end: 20200525
  17. ENULOSE [Concomitant]
     Active Substance: LACTULOSE
     Dates: start: 20200516, end: 20200516
  18. ACETAMINOPHEN. [Concomitant]
     Active Substance: ACETAMINOPHEN
     Indication: PYREXIA
     Dates: start: 20200511, end: 20200524
  19. PHENOBARBITAL. [Concomitant]
     Active Substance: PHENOBARBITAL
     Dates: start: 20200513, end: 20200519
  20. ZOSYN [Concomitant]
     Active Substance: PIPERACILLIN SODIUM\TAZOBACTAM SODIUM
     Indication: PNEUMONIA
     Dates: start: 20200513, end: 20200514
  21. LOVENOX [Concomitant]
     Active Substance: ENOXAPARIN SODIUM
     Indication: THROMBOSIS PROPHYLAXIS
     Dates: start: 20200520, end: 20200527
  22. LEVOPHED [Concomitant]
     Active Substance: NOREPINEPHRINE BITARTRATE
     Dates: start: 20200511, end: 20200525
  23. LACTATED RINGERS SOLUTION [Concomitant]
     Active Substance: CALCIUM CHLORIDE\POTASSIUM CHLORIDE\SODIUM CHLORIDE\SODIUM LACTATE
     Indication: BLOOD ELECTROLYTES
     Dates: start: 20200510, end: 20200513
  24. ANCEF (UNITED STATES) [Concomitant]
     Dates: start: 20200518, end: 20200519
  25. ANCEF (UNITED STATES) [Concomitant]
     Dates: start: 20200515, end: 20200521
  26. POTASSIUM CHLORIDE. [Concomitant]
     Active Substance: POTASSIUM CHLORIDE
     Dates: start: 20200521, end: 20200523
  27. NEXIUM [Concomitant]
     Active Substance: ESOMEPRAZOLE MAGNESIUM
     Indication: GASTROOESOPHAGEAL REFLUX DISEASE
     Dates: start: 20200511, end: 20200527
  28. TORADOL [Concomitant]
     Active Substance: KETOROLAC TROMETHAMINE
     Indication: NAUSEA
     Dates: start: 20200524, end: 20200524
  29. FENTANYL. [Concomitant]
     Active Substance: FENTANYL
     Dates: start: 20200511, end: 20200524
  30. KETALAR [Concomitant]
     Active Substance: KETAMINE HYDROCHLORIDE
     Dates: start: 20200513, end: 20200524
  31. MIRALAX [Concomitant]
     Active Substance: POLYETHYLENE GLYCOL 3350
     Indication: CONSTIPATION PROPHYLAXIS
     Dates: start: 20200511, end: 20200514
  32. VERSED [Concomitant]
     Active Substance: MIDAZOLAM HYDROCHLORIDE
     Dates: start: 20200517, end: 20200517
  33. LASIX [Concomitant]
     Active Substance: FUROSEMIDE
     Dates: start: 20200518, end: 20200519
  34. MIRALAX [Concomitant]
     Active Substance: POLYETHYLENE GLYCOL 3350
     Indication: CONSTIPATION PROPHYLAXIS
     Dates: start: 20200514, end: 20200525
  35. POTASSIUM CHLORIDE. [Concomitant]
     Active Substance: POTASSIUM CHLORIDE
     Dosage: 40 (OTHER)
     Dates: start: 20200517, end: 20200524
  36. ACETAMINOPHEN. [Concomitant]
     Active Substance: ACETAMINOPHEN
     Indication: PAIN PROPHYLAXIS
     Dates: start: 20200524, end: 20200527
  37. LACTATED RINGERS SOLUTION [Concomitant]
     Active Substance: CALCIUM CHLORIDE\POTASSIUM CHLORIDE\SODIUM CHLORIDE\SODIUM LACTATE
     Dates: start: 20200510, end: 20200510
  38. TOCILIZUMAB. [Suspect]
     Active Substance: TOCILIZUMAB
     Indication: COVID-19 PNEUMONIA
     Dosage: DOSE OF 4 MG/KG IN ADDITION TO STANDARD?OF?CARE TREATMENT?DATE OF MOST RECENT DOSE OF TOCILIZUMAB PR
     Route: 042
     Dates: start: 20200511
  39. VANCOMYCIN [Concomitant]
     Active Substance: VANCOMYCIN
     Indication: PNEUMONIA
     Dates: start: 20200513, end: 20200514

REACTIONS (1)
  - Staphylococcal infection [Not Recovered/Not Resolved]

NARRATIVE: CASE EVENT DATE: 20200512
